FAERS Safety Report 13731468 (Version 4)
Quarter: 2017Q4

REPORT INFORMATION
  Report Type: Spontaneous
  Country: US (occurrence: US)
  Receive Date: 20170707
  Receipt Date: 20171201
  Transmission Date: 20180320
  Serious: Yes (Other)
  Sender: FDA-Public Use
  Company Number: US-PFIZER INC-2017295556

PATIENT
  Age: 81 Year
  Sex: Female
  Weight: 79.38 kg

DRUGS (10)
  1. ADVIL [Suspect]
     Active Substance: IBUPROFEN
     Dosage: 4 DF, UNK
     Dates: start: 2017, end: 2017
  2. DIAPHAN HSP [Suspect]
     Active Substance: INSULIN HUMAN
     Dosage: UNK
  3. LOPERAMIDE [Concomitant]
     Active Substance: LOPERAMIDE
     Indication: ANAL INCONTINENCE
  4. SERTRALINE [Concomitant]
     Active Substance: SERTRALINE HYDROCHLORIDE
     Indication: DEPRESSION
     Dosage: 50 MG, UNK
  5. LOPERAMIDE [Concomitant]
     Active Substance: LOPERAMIDE
     Indication: BOWEL MOVEMENT IRREGULARITY
     Dosage: 2 MG, UNK, (CONSTANTLY)
     Dates: start: 1993
  6. SERTRALINE [Concomitant]
     Active Substance: SERTRALINE HYDROCHLORIDE
     Dosage: 70 MG, UNK
  7. ADVIL [Suspect]
     Active Substance: IBUPROFEN
     Indication: DRUG THERAPY ENHANCEMENT
     Dosage: 400 MG, AS NEEDED, (2 TABLETS)
     Dates: start: 20170627, end: 20170705
  8. LEVOTHYROXINE. [Concomitant]
     Active Substance: LEVOTHYROXINE
     Indication: THYROIDECTOMY
     Dosage: 150 UG, DAILY, (EVERY DAY)
     Dates: start: 1961
  9. BENEFIBER [Concomitant]
     Active Substance: STARCH, WHEAT
     Indication: ANAL INCONTINENCE
     Dosage: UNK, (1/2 TO 3/4 TEASPOON, MIXES WITH HER COFFEE)
  10. AMLODIPINE [Concomitant]
     Active Substance: AMLODIPINE BESYLATE
     Indication: HYPERTENSION
     Dosage: 10 MG, 2X/DAY
     Dates: start: 20170703

REACTIONS (8)
  - Cough [Recovered/Resolved]
  - Dysphonia [Unknown]
  - Intentional product misuse [Unknown]
  - Angioedema [Unknown]
  - Laryngitis [Unknown]
  - Weight increased [Unknown]
  - Body height decreased [Unknown]
  - Drug hypersensitivity [Unknown]

NARRATIVE: CASE EVENT DATE: 2017
